FAERS Safety Report 14324035 (Version 14)
Quarter: 2019Q4

REPORT INFORMATION
  Report Type: Spontaneous
  Country: IT (occurrence: IT)
  Receive Date: 20171226
  Receipt Date: 20191115
  Transmission Date: 20200122
  Serious: Yes (Death, Life-Threatening, Hospitalization, Other)
  Sender: FDA-Public Use
  Company Number: IT-MYLANLABS-M-EU-2016070358

PATIENT
  Age: 82 Year
  Sex: Female

DRUGS (44)
  1. FENTANYL. [Interacting]
     Active Substance: FENTANYL
     Dosage: 100 MCGUPGRADEABLE TO 200 MCG
     Route: 062
  2. RIFAMPICIN [Interacting]
     Active Substance: RIFAMPIN
     Dosage: 300 MG, QD
     Route: 042
  3. VANCOMYCIN [Interacting]
     Active Substance: VANCOMYCIN
     Dosage: 500 GRAM, CYCLE
     Route: 042
     Dates: start: 20150522
  4. LEVOFLOXACIN. [Suspect]
     Active Substance: LEVOFLOXACIN
     Indication: STAPHYLOCOCCAL SKIN INFECTION
     Dosage: 500 MG, TOTAL (LOADING DOSE)
     Route: 048
     Dates: start: 20150521, end: 20150521
  5. LEVOFLOXACIN. [Interacting]
     Active Substance: LEVOFLOXACIN
     Dosage: 500 MG, TOTAL (LOADING DOSE)
     Route: 048
  6. LEVOFLOXACIN. [Interacting]
     Active Substance: LEVOFLOXACIN
     Dosage: 500 UNK
     Route: 048
  7. FENTANYL. [Interacting]
     Active Substance: FENTANYL
     Indication: PAIN IN EXTREMITY
     Dosage: 100 MICROGRAM
     Route: 062
     Dates: start: 20150602, end: 20150602
  8. FENTANYL. [Interacting]
     Active Substance: FENTANYL
     Dosage: 200 ?G, UNK
     Route: 062
     Dates: start: 2015, end: 20150602
  9. VANCOMYCIN [Interacting]
     Active Substance: VANCOMYCIN
     Dosage: (BY A SWAB APPLIED TO A LEFT FOOT ULCER POSITIVE FOR STAPHYLOCOCCUS AUREUS)
     Route: 061
     Dates: start: 2015
  10. VANCOMYCIN [Interacting]
     Active Substance: VANCOMYCIN
     Dosage: 1 GRAM
     Route: 065
     Dates: start: 20150521, end: 20150521
  11. VANCOMYCIN [Interacting]
     Active Substance: VANCOMYCIN
     Dosage: 500 GRAM
     Route: 042
     Dates: start: 20150522
  12. VANCOMYCIN [Interacting]
     Active Substance: VANCOMYCIN
     Dosage: 1 GRAM
     Route: 065
  13. LEVOFLOXACIN. [Interacting]
     Active Substance: LEVOFLOXACIN
     Dosage: 125 MILLIGRAM, QD
     Route: 048
     Dates: start: 20150522
  14. LEVOFLOXACIN. [Interacting]
     Active Substance: LEVOFLOXACIN
     Dosage: 125 MG, QD,MAINTENANCE DOSE
     Route: 048
  15. FENTANYL. [Interacting]
     Active Substance: FENTANYL
     Indication: PAIN
     Dosage: 25 ?G, QH
     Route: 062
     Dates: start: 20150528, end: 20150602
  16. FENTANYL. [Interacting]
     Active Substance: FENTANYL
     Dosage: 25 ?G, QH
     Route: 062
     Dates: start: 20150521
  17. FENTANYL. [Interacting]
     Active Substance: FENTANYL
     Dosage: 200 ?G, UNK
     Route: 048
     Dates: start: 20150101
  18. VANCOMYCIN [Interacting]
     Active Substance: VANCOMYCIN
     Indication: STAPHYLOCOCCAL INFECTION
     Dosage: 500 MG, UNK (MAINTENANCE DOSE; AT THE END OF DIALYSIS)
     Route: 042
     Dates: start: 2015
  19. VANCOMYCIN [Interacting]
     Active Substance: VANCOMYCIN
     Dosage: 1 GRAM (LOADING DOSE)
     Route: 042
     Dates: start: 2015
  20. LEVOFLOXACIN. [Interacting]
     Active Substance: LEVOFLOXACIN
     Dosage: 125 MG, QD,MAINTENANCE DOSE
     Route: 048
     Dates: start: 2015
  21. LEVOFLOXACIN. [Interacting]
     Active Substance: LEVOFLOXACIN
     Dosage: 500 MILLIGRAM (LOADING DOSE)
     Route: 048
     Dates: start: 2015
  22. FENTANYL. [Interacting]
     Active Substance: FENTANYL
     Dosage: 25 MICROGRAM
     Route: 062
  23. LEVOFLOXACIN. [Interacting]
     Active Substance: LEVOFLOXACIN
     Dosage: 500 MG, TOTAL
     Route: 048
     Dates: start: 20150521, end: 20150521
  24. FENTANYL. [Interacting]
     Active Substance: FENTANYL
     Dosage: 12 UNK
     Route: 062
  25. FENTANYL. [Interacting]
     Active Substance: FENTANYL
     Indication: PROCEDURAL PAIN
     Dosage: 100 ?G, UNK
     Dates: start: 2015, end: 20150602
  26. FENTANYL. [Interacting]
     Active Substance: FENTANYL
     Indication: PAIN
     Dosage: 200 ?G, UNK
     Route: 065
     Dates: start: 20150521
  27. FENTANYL. [Interacting]
     Active Substance: FENTANYL
     Dosage: 200 ?G, UNK
     Route: 065
     Dates: start: 2015
  28. VANCOMYCIN [Interacting]
     Active Substance: VANCOMYCIN
     Dosage: UNK
     Route: 061
  29. VANCOMYCIN [Interacting]
     Active Substance: VANCOMYCIN
     Dosage: 500 GRAM
  30. LEVOFLOXACIN. [Interacting]
     Active Substance: LEVOFLOXACIN
     Dosage: LOADING DOSE
     Route: 048
     Dates: start: 2015
  31. FENTANYL. [Interacting]
     Active Substance: FENTANYL
     Dosage: 12 ?G, QH
     Route: 062
  32. RIFAMPICIN [Interacting]
     Active Substance: RIFAMPIN
     Dosage: UNK
  33. RIFAMPICIN [Interacting]
     Active Substance: RIFAMPIN
     Dosage: UNK
     Dates: start: 2015
  34. FENTANYL. [Interacting]
     Active Substance: FENTANYL
     Dosage: 100 ?G, UNK
     Route: 048
  35. VANCOMYCIN [Interacting]
     Active Substance: VANCOMYCIN
     Dosage: UNK
     Route: 061
  36. VANCOMYCIN [Interacting]
     Active Substance: VANCOMYCIN
     Dosage: 500 UNK
     Route: 042
  37. LEVOFLOXACIN. [Interacting]
     Active Substance: LEVOFLOXACIN
     Dosage: 125 MG,UNK
     Route: 048
  38. FENTANYL. [Interacting]
     Active Substance: FENTANYL
     Indication: ANGIOPATHY
     Dosage: 12 ?G, QH
     Route: 062
     Dates: start: 20150521, end: 20150528
  39. RIFAMPICIN [Interacting]
     Active Substance: RIFAMPIN
     Indication: STAPHYLOCOCCAL SKIN INFECTION
     Dosage: 300 MG, QD
     Route: 042
     Dates: start: 20150521
  40. RIFAMPICIN [Interacting]
     Active Substance: RIFAMPIN
     Dosage: 300 MILLIGRAM, QD
     Dates: start: 2015
  41. FENTANYL. [Interacting]
     Active Substance: FENTANYL
     Dosage: 100 MCG 1 TABLET UPGRADEABLE TO 200 MCG.TRANSMUCOSAL ORAL
     Route: 048
     Dates: start: 20150602, end: 20150602
  42. FENTANYL. [Interacting]
     Active Substance: FENTANYL
     Dosage: 100 ?G, UNK
     Route: 048
     Dates: start: 20150521
  43. VANCOMYCIN [Interacting]
     Active Substance: VANCOMYCIN
     Dosage: 1 GRAM, TOTAL
     Route: 042
     Dates: start: 20150521, end: 20150521
  44. VANCOMYCIN [Interacting]
     Active Substance: VANCOMYCIN
     Dosage: 500 GRAM
     Dates: start: 20150501

REACTIONS (20)
  - Sepsis [Fatal]
  - Depressed level of consciousness [Recovered/Resolved]
  - Labelled drug-drug interaction medication error [Unknown]
  - Pyrexia [Fatal]
  - Hallucination [Recovered/Resolved]
  - Therapy naive [Unknown]
  - Sopor [Recovered/Resolved]
  - Toxicity to various agents [Unknown]
  - Miosis [Recovered/Resolved]
  - Somnolence [Recovered/Resolved]
  - Overdose [Unknown]
  - Drug ineffective [Unknown]
  - Off label use [Unknown]
  - Generalised non-convulsive epilepsy [Fatal]
  - Altered state of consciousness [Recovered/Resolved]
  - Drug interaction [Unknown]
  - Prescribed overdose [Fatal]
  - Tremor [Recovered/Resolved]
  - Product use in unapproved indication [Unknown]
  - Status epilepticus [Recovered/Resolved]

NARRATIVE: CASE EVENT DATE: 20150206
